FAERS Safety Report 5627736-9 (Version None)
Quarter: 2008Q1

REPORT INFORMATION
  Report Type: 
  Country: None (occurrence: None)
  Receive Date: 20080215
  Receipt Date: 20080212
  Transmission Date: 20080703
  Serious: Yes (Other)
  Sender: FDA-Public Use
  Company Number: US-BAYER-200813090GPV

PATIENT

DRUGS (1)
  1. SORAFENIB [Suspect]
     Indication: PROSTATE CANCER
     Dosage: TOTAL DAILY DOSE: 800 MG
     Route: 065

REACTIONS (1)
  - HYPOCALCAEMIA [None]
